FAERS Safety Report 18484219 (Version 3)
Quarter: 2021Q2

REPORT INFORMATION
  Report Type: Spontaneous
  Country: DE (occurrence: DE)
  Receive Date: 20201110
  Receipt Date: 20210426
  Transmission Date: 20210717
  Serious: Yes (Death, Other)
  Sender: FDA-Public Use
  Company Number: DE-ROCHE-2710323

PATIENT
  Age: 75 Year
  Sex: Female
  Weight: 80 kg

DRUGS (5)
  1. GAZYVARO [Suspect]
     Active Substance: OBINUTUZUMAB
     Indication: CHRONIC LYMPHOCYTIC LEUKAEMIA
     Dosage: INITIAL DOSE ON THE FIRST DAY THEN 900 MG ON SECOND DAY ON 08/OCT/2020.
     Route: 042
  2. PARACETAMOL [Concomitant]
     Active Substance: ACETAMINOPHEN
     Route: 048
     Dates: start: 20201007, end: 20201008
  3. DEXAMETHASONE. [Concomitant]
     Active Substance: DEXAMETHASONE
     Route: 048
     Dates: start: 20201007, end: 20201008
  4. FENISTIL [Concomitant]
     Active Substance: DIMETHINDENE
     Route: 042
  5. GAZYVARO [Suspect]
     Active Substance: OBINUTUZUMAB
     Dosage: ON THE SECOND DAY
     Route: 042

REACTIONS (3)
  - Abnormal clotting factor [Fatal]
  - Intra-abdominal haemorrhage [Fatal]
  - Prothrombin time prolonged [Unknown]

NARRATIVE: CASE EVENT DATE: 20201009
